FAERS Safety Report 24642052 (Version 2)
Quarter: 2024Q4

REPORT INFORMATION
  Report Type: Report from Study
  Country: CN (occurrence: CN)
  Receive Date: 20241120
  Receipt Date: 20241216
  Transmission Date: 20250115
  Serious: Yes (Other)
  Sender: PFIZER
  Company Number: CN-TAKEDA-2023TUS011652

PATIENT
  Age: 69 Year
  Sex: Female
  Weight: 50 kg

DRUGS (8)
  1. ADCETRIS [Suspect]
     Active Substance: BRENTUXIMAB VEDOTIN
     Indication: Hodgkin^s disease
     Dosage: 50 MILLIGRAM, 2/WEEK
     Route: 041
     Dates: start: 20220809
  2. ADCETRIS [Suspect]
     Active Substance: BRENTUXIMAB VEDOTIN
     Indication: Anaplastic large cell lymphoma T- and null-cell types
  3. EPIRUBICIN HYDROCHLORIDE [Suspect]
     Active Substance: EPIRUBICIN HYDROCHLORIDE
     Indication: Hodgkin^s disease
     Dosage: 55 MILLIGRAM, QD
     Route: 042
     Dates: start: 20220809, end: 20221106
  4. EPIRUBICIN HYDROCHLORIDE [Suspect]
     Active Substance: EPIRUBICIN HYDROCHLORIDE
     Indication: Anaplastic large cell lymphoma T- and null-cell types
     Dosage: 50 MILLIGRAM, QD
     Route: 042
     Dates: start: 20221121, end: 20230105
  5. VINCRISTINE [Suspect]
     Active Substance: VINCRISTINE
     Indication: Hodgkin^s disease
     Dosage: 2 MILLIGRAM, QD
     Route: 042
     Dates: start: 20220809, end: 20230105
  6. VINCRISTINE [Suspect]
     Active Substance: VINCRISTINE
     Indication: Anaplastic large cell lymphoma T- and null-cell types
  7. DACARBAZINE [Suspect]
     Active Substance: DACARBAZINE
     Indication: Hodgkin^s disease
     Dosage: 558 MILLIGRAM, QD
     Route: 042
     Dates: start: 20220809, end: 20221121
  8. DACARBAZINE [Suspect]
     Active Substance: DACARBAZINE
     Indication: Anaplastic large cell lymphoma T- and null-cell types
     Dosage: 547 MILLIGRAM, QD
     Route: 042
     Dates: start: 20221205, end: 20230105

REACTIONS (7)
  - Myelosuppression [Recovered/Resolved]
  - Aspartate aminotransferase increased [Recovered/Resolved]
  - Hyperglycaemia [Recovered/Resolved]
  - Hyponatraemia [Recovered/Resolved]
  - Hypoproteinaemia [Not Recovered/Not Resolved]
  - Bile acids increased [Not Recovered/Not Resolved]
  - Off label use [Recovered/Resolved]

NARRATIVE: CASE EVENT DATE: 20220809
